FAERS Safety Report 6402165-9 (Version None)
Quarter: 2009Q4

REPORT INFORMATION
  Report Type: 
  Country: None (occurrence: None)
  Receive Date: 20091015
  Receipt Date: 20091005
  Transmission Date: 20100525
  Serious: Yes (Other)
  Sender: FDA-Public Use
  Company Number: US-ABBOTT-09P-163-0573117-00

PATIENT
  Sex: Female
  Weight: 81.72 kg

DRUGS (3)
  1. LUPRON DEPOT [Suspect]
     Indication: UTERINE LEIOMYOMA
     Route: 050
     Dates: start: 20080904, end: 20080904
  2. LUPRON DEPOT [Suspect]
     Route: 050
     Dates: start: 20081004, end: 20081004
  3. LUPRON DEPOT [Suspect]
     Route: 050
     Dates: start: 20090128, end: 20090128

REACTIONS (18)
  - ASTHENIA [None]
  - BONE MARROW DISORDER [None]
  - BONE PAIN [None]
  - DYSPNOEA [None]
  - FALL [None]
  - FATIGUE [None]
  - FEELING HOT [None]
  - GAIT DISTURBANCE [None]
  - JOINT CREPITATION [None]
  - MUSCULAR WEAKNESS [None]
  - NIGHT SWEATS [None]
  - OEDEMA PERIPHERAL [None]
  - OSTEOARTHRITIS [None]
  - PAIN [None]
  - PERIPHERAL EMBOLISM [None]
  - PULMONARY THROMBOSIS [None]
  - SENSATION OF HEAVINESS [None]
  - TREMOR [None]
